FAERS Safety Report 6060196-5 (Version None)
Quarter: 2009Q1

REPORT INFORMATION
  Report Type: 
  Country: None (occurrence: None)
  Receive Date: 20090128
  Receipt Date: 20090116
  Transmission Date: 20090719
  Serious: Yes (Death, Hospitalization, Other)
  Sender: FDA-Public Use
  Company Number: 230435M08USA

PATIENT
  Age: 35 Year
  Sex: Female
  Weight: 61 kg

DRUGS (6)
  1. REBIF [Suspect]
     Indication: MULTIPLE SCLEROSIS
     Dosage: 44 MCG, 3 IN 1 WEEKS, SUBCUTANEOUS
     Route: 058
     Dates: start: 20070601, end: 20080101
  2. TRILEPTAL [Concomitant]
  3. LORTAB (VICODIN) [Concomitant]
  4. BACLOFEN [Concomitant]
  5. ATIVAN [Concomitant]
  6. LOPRESSOR (METOPROLOL TARTRATE) [Concomitant]

REACTIONS (10)
  - ASPIRATION [None]
  - ASTHENIA [None]
  - CONDITION AGGRAVATED [None]
  - CONVULSION [None]
  - DYSPHAGIA [None]
  - GENERAL PHYSICAL HEALTH DETERIORATION [None]
  - HEART RATE INCREASED [None]
  - MULTIPLE SCLEROSIS [None]
  - PNEUMONIA [None]
  - URINARY TRACT INFECTION [None]
